FAERS Safety Report 11194223 (Version 1)
Quarter: 2015Q2

REPORT INFORMATION
  Report Type: Spontaneous
  Country: FR (occurrence: FR)
  Receive Date: 20150616
  Receipt Date: 20150616
  Transmission Date: 20150821
  Serious: Yes (Hospitalization)
  Sender: FDA-Public Use
  Company Number: FR-BAXTER-2015BAX030962

PATIENT
  Age: 53 Year
  Sex: Female
  Weight: 83 kg

DRUGS (25)
  1. TAXOTERE [Suspect]
     Active Substance: DOCETAXEL
     Indication: ADJUVANT THERAPY
     Route: 042
     Dates: start: 20090915, end: 20091208
  2. POLARAMINE [Suspect]
     Active Substance: DEXCHLORPHENIRAMINE MALEATE
     Route: 042
     Dates: start: 20091027, end: 20091208
  3. DEXAMETHASONE. [Suspect]
     Active Substance: DEXAMETHASONE
     Route: 042
     Dates: start: 20091006, end: 20091208
  4. ENDOXAN 1000 MG, POUDRE POUR SOLUTION INJECTABLE [Suspect]
     Active Substance: CYCLOPHOSPHAMIDE
     Indication: ADJUVANT THERAPY
     Route: 042
     Dates: start: 20090915, end: 20091208
  5. ENDOXAN 1000 MG, POUDRE POUR SOLUTION INJECTABLE [Suspect]
     Active Substance: CYCLOPHOSPHAMIDE
     Route: 042
     Dates: start: 20091027, end: 20091208
  6. ENDOXAN 1000 MG, POUDRE POUR SOLUTION INJECTABLE [Suspect]
     Active Substance: CYCLOPHOSPHAMIDE
     Route: 042
     Dates: start: 20091208, end: 20091208
  7. TAXOTERE [Suspect]
     Active Substance: DOCETAXEL
     Indication: BREAST CANCER
     Route: 042
     Dates: start: 20091006, end: 20091208
  8. ZOPHREN [Suspect]
     Active Substance: ONDANSETRON
     Route: 042
     Dates: start: 20091027, end: 20091208
  9. POLARAMINE [Suspect]
     Active Substance: DEXCHLORPHENIRAMINE MALEATE
     Indication: PRODUCT USED FOR UNKNOWN INDICATION
     Route: 042
     Dates: start: 20090915, end: 20091208
  10. ENDOXAN 1000 MG, POUDRE POUR SOLUTION INJECTABLE [Suspect]
     Active Substance: CYCLOPHOSPHAMIDE
     Indication: BREAST CANCER
     Route: 042
     Dates: start: 20091006, end: 20091208
  11. ENDOXAN 1000 MG, POUDRE POUR SOLUTION INJECTABLE [Suspect]
     Active Substance: CYCLOPHOSPHAMIDE
     Route: 042
     Dates: start: 20091117, end: 20091208
  12. TAXOTERE [Suspect]
     Active Substance: DOCETAXEL
     Route: 042
     Dates: start: 20091027, end: 20091208
  13. TAXOTERE [Suspect]
     Active Substance: DOCETAXEL
     Route: 042
     Dates: start: 20091117, end: 20091208
  14. POLARAMINE [Suspect]
     Active Substance: DEXCHLORPHENIRAMINE MALEATE
     Route: 042
     Dates: start: 20091208, end: 20091208
  15. ZOPHREN [Suspect]
     Active Substance: ONDANSETRON
     Route: 042
     Dates: start: 20091117, end: 20091208
  16. DEXAMETHASONE. [Suspect]
     Active Substance: DEXAMETHASONE
     Route: 042
     Dates: start: 20091027, end: 20091208
  17. DEXAMETHASONE. [Suspect]
     Active Substance: DEXAMETHASONE
     Route: 042
     Dates: start: 20091208, end: 20091208
  18. TAXOTERE [Suspect]
     Active Substance: DOCETAXEL
     Route: 042
     Dates: start: 20091208, end: 20091208
  19. ZOPHREN [Suspect]
     Active Substance: ONDANSETRON
     Route: 042
     Dates: start: 20091208, end: 20091208
  20. ZOPHREN [Suspect]
     Active Substance: ONDANSETRON
     Indication: PREMEDICATION
     Dosage: 8 KIU
     Route: 042
     Dates: start: 20090915, end: 20091208
  21. POLARAMINE [Suspect]
     Active Substance: DEXCHLORPHENIRAMINE MALEATE
     Route: 042
     Dates: start: 20091006, end: 20091208
  22. POLARAMINE [Suspect]
     Active Substance: DEXCHLORPHENIRAMINE MALEATE
     Route: 042
     Dates: start: 20091117, end: 20091208
  23. DEXAMETHASONE. [Suspect]
     Active Substance: DEXAMETHASONE
     Indication: PRODUCT USED FOR UNKNOWN INDICATION
     Route: 042
     Dates: start: 20090915, end: 20091208
  24. ZOPHREN [Suspect]
     Active Substance: ONDANSETRON
     Route: 042
     Dates: start: 20091006, end: 20091208
  25. DEXAMETHASONE. [Suspect]
     Active Substance: DEXAMETHASONE
     Route: 042
     Dates: start: 20091117, end: 20091208

REACTIONS (1)
  - Dacryostenosis acquired [Unknown]

NARRATIVE: CASE EVENT DATE: 20091117
